FAERS Safety Report 8026985-2 (Version None)
Quarter: 2012Q1

REPORT INFORMATION
  Report Type: 
  Country: None (occurrence: None)
  Receive Date: 20120106
  Receipt Date: 20120104
  Transmission Date: 20120608
  Serious: Yes (Other)
  Sender: FDA-Public Use
  Company Number: US-PFIZER INC-2012002462

PATIENT
  Age: 94 Year
  Sex: Female

DRUGS (1)
  1. DETROL [Suspect]
     Dosage: UNK
     Route: 048

REACTIONS (3)
  - GASTRIC DISORDER [None]
  - DYSPNOEA [None]
  - DRY MOUTH [None]
